FAERS Safety Report 4662383-7 (Version None)
Quarter: 2005Q2

REPORT INFORMATION
  Report Type: 
  Country: None (occurrence: None)
  Receive Date: 20050512
  Receipt Date: 20050426
  Transmission Date: 20051028
  Serious: Yes (Other)
  Sender: FDA-Public Use
  Company Number: USA050495404

PATIENT
  Age: 80 Year

DRUGS (12)
  1. CYMBALTA [Suspect]
     Indication: DEPRESSION
     Dosage: 60 MG DAY
     Dates: start: 20050304
  2. COUMADIN [Concomitant]
  3. ULTRACET [Concomitant]
  4. GLIPIZIDE [Concomitant]
  5. ALTACE (RAMIPRIL DURA) [Concomitant]
  6. LASIX [Concomitant]
  7. LIPITOR [Concomitant]
  8. DIGOXIN [Concomitant]
  9. PREVACID [Concomitant]
  10. TIAZAC [Concomitant]
  11. POTASSIUM CHLORIDE [Concomitant]
  12. VIACTIV [Concomitant]

REACTIONS (2)
  - DRUG INTERACTION [None]
  - INTERNATIONAL NORMALISED RATIO INCREASED [None]
